FAERS Safety Report 7551071-5 (Version None)
Quarter: 2011Q2

REPORT INFORMATION
  Report Type: 
  Country: None (occurrence: None)
  Receive Date: 20110616
  Receipt Date: 20110610
  Transmission Date: 20111010
  Serious: Yes (Life-Threatening, Hospitalization, Other)
  Sender: FDA-Public Use
  Company Number: US-BRISTOL-MYERS SQUIBB COMPANY-15765324

PATIENT
  Age: 68 Year
  Sex: Male

DRUGS (7)
  1. GLYBURIDE [Suspect]
     Indication: DIABETES MELLITUS
  2. NIACIN [Concomitant]
  3. METFORMIN HCL [Suspect]
     Indication: TYPE 2 DIABETES MELLITUS
     Dosage: STOPPED ON 03FEB11; RESTARTED ON 04FEB11.
  4. ASPIRIN [Concomitant]
     Dosage: 1 DF={ 100 MG ON 14DEC10,11JUN10,14SEP10,09JUN11 + 19MAY11.
  5. PLACEBO [Suspect]
     Indication: TYPE 2 DIABETES MELLITUS
     Dates: start: 20100614
  6. BLINDED: SAXAGLIPTIN [Suspect]
     Indication: TYPE 2 DIABETES MELLITUS
     Dosage: INTERRUPTED ON 13JAN2011.
     Dates: start: 20100614
  7. NPH INSULIN [Suspect]
     Indication: DIABETES MELLITUS
     Dosage: 1 DF:100 MICRO MOL

REACTIONS (4)
  - PNEUMONIA [None]
  - ACUTE RESPIRATORY FAILURE [None]
  - RENAL FAILURE ACUTE [None]
  - PANCREATITIS ACUTE [None]
